FAERS Safety Report 8096414-1 (Version None)
Quarter: 2012Q1

REPORT INFORMATION
  Report Type: 
  Country: None (occurrence: None)
  Receive Date: 20120129
  Receipt Date: 20111213
  Transmission Date: 20120608
  Serious: No
  Sender: FDA-Public Use
  Company Number: US-ABBOTT-11P-163-0882927-00

PATIENT
  Age: 40 Year
  Sex: Male

DRUGS (5)
  1. HUMIRA [Suspect]
     Indication: CROHN'S DISEASE
     Dates: start: 20111114
  2. ZOLOFT [Concomitant]
     Indication: ANXIETY
     Dosage: DAILY
  3. HUMIRA [Suspect]
     Indication: PSORIASIS
  4. XANAX [Concomitant]
     Indication: ANXIETY
     Dosage: NIGHTLY
  5. MERCAPTOPURINE [Concomitant]
     Indication: CROHN'S DISEASE
     Dosage: DAILY

REACTIONS (3)
  - RASH PRURITIC [None]
  - CONTUSION [None]
  - RASH ERYTHEMATOUS [None]
